FAERS Safety Report 25321162 (Version 1)
Quarter: 2025Q2

REPORT INFORMATION
  Report Type: Spontaneous
  Country: US (occurrence: US)
  Receive Date: 20250515
  Receipt Date: 20250515
  Transmission Date: 20250716
  Serious: Yes (Other)
  Sender: PURDUE
  Company Number: US-PURDUE PHARMA-USA-2025-0317449

PATIENT
  Age: 4 Decade
  Sex: Male

DRUGS (1)
  1. OXYCONTIN [Suspect]
     Active Substance: OXYCODONE HYDROCHLORIDE
     Indication: Pain
     Route: 048

REACTIONS (2)
  - Drug dependence [Unknown]
  - Gastrointestinal disorder [Unknown]
